FAERS Safety Report 25850130 (Version 1)
Quarter: 2025Q3

REPORT INFORMATION
  Report Type: Spontaneous
  Country: US (occurrence: US)
  Receive Date: 20250926
  Receipt Date: 20250926
  Transmission Date: 20251021
  Serious: No
  Sender: AXSOME THERAPEUTICS
  Company Number: US-AXS-AXS202509-001585

PATIENT

DRUGS (1)
  1. AUVELITY [Suspect]
     Active Substance: BUPROPION HYDROCHLORIDE\DEXTROMETHORPHAN HYDROBROMIDE
     Indication: Product used for unknown indication
     Route: 050

REACTIONS (6)
  - Urinary incontinence [Unknown]
  - Diarrhoea [Unknown]
  - Lethargy [Unknown]
  - Fatigue [Unknown]
  - Depression [Unknown]
  - Therapeutic product effect decreased [Unknown]
